FAERS Safety Report 19195063 (Version 1)
Quarter: 2021Q2

REPORT INFORMATION
  Report Type: Other
  Country: CN (occurrence: CN)
  Receive Date: 20210429
  Receipt Date: 20210429
  Transmission Date: 20210717
  Serious: Yes (Other)
  Sender: FDA-Public Use
  Company Number: CN-HRARD-2021000139

PATIENT
  Age: 13 Year
  Sex: Female
  Weight: 62 kg

DRUGS (3)
  1. MITOTANE [Suspect]
     Active Substance: MITOTANE
     Dosage: FROM 1 G/DAY TO 3 G/DAY IN 10 DAYS
     Route: 065
  2. HYDROCORTISONE. [Concomitant]
     Active Substance: HYDROCORTISONE
     Route: 065
  3. MITOTANE [Suspect]
     Active Substance: MITOTANE
     Dosage: FROM 1 G/DAY TO 3 G/DAY IN 10 DAYS
     Route: 065

REACTIONS (4)
  - Sepsis [Unknown]
  - Malignant neoplasm progression [Not Recovered/Not Resolved]
  - Adrenocortical insufficiency acute [Unknown]
  - Parainfluenzae virus infection [Unknown]
